FAERS Safety Report 16403521 (Version 1)
Quarter: 2019Q2

REPORT INFORMATION
  Report Type: Spontaneous
  Country: FR (occurrence: FR)
  Receive Date: 20190607
  Receipt Date: 20190607
  Transmission Date: 20190711
  Serious: Yes (Hospitalization, Other)
  Sender: FDA-Public Use
  Company Number: FR-AUROBINDO-AUR-APL-2019-031560

PATIENT

DRUGS (7)
  1. TAXOTERE [Suspect]
     Active Substance: DOCETAXEL
     Indication: SQUAMOUS CELL CARCINOMA OF THE HYPOPHARYNX
     Dosage: 120 MILLIGRAM
     Route: 042
     Dates: start: 20190319
  2. METHYLPREDNISOLONE. [Suspect]
     Active Substance: METHYLPREDNISOLONE
     Indication: SQUAMOUS CELL CARCINOMA OF THE HYPOPHARYNX
     Dosage: 60 MILLIGRAM, DAILY
     Route: 042
     Dates: start: 20190319
  3. CISPLATIN. [Suspect]
     Active Substance: CISPLATIN
     Indication: SQUAMOUS CELL CARCINOMA OF THE HYPOPHARYNX
     Dosage: 119 MILLIGRAM
     Route: 042
     Dates: start: 20190319
  4. FLUOROURACILE [Suspect]
     Active Substance: FLUOROURACIL
     Indication: SQUAMOUS CELL CARCINOMA OF THE HYPOPHARYNX
     Dosage: 5950 MILLIGRAM
     Route: 041
     Dates: start: 20190319
  5. APREPITANT. [Suspect]
     Active Substance: APREPITANT
     Indication: SQUAMOUS CELL CARCINOMA OF THE HYPOPHARYNX
     Dosage: 80 MILLIGRAM, DAILY
     Route: 048
     Dates: start: 20190319
  6. ONDANSETRON [Suspect]
     Active Substance: ONDANSETRON
     Indication: SQUAMOUS CELL CARCINOMA OF THE HYPOPHARYNX
     Dosage: 16 MILLIGRAM, DAILY
     Route: 042
     Dates: start: 20190319
  7. PREDNISONE. [Suspect]
     Active Substance: PREDNISONE
     Indication: SQUAMOUS CELL CARCINOMA OF THE HYPOPHARYNX
     Dosage: 40 MILLIGRAM, DAILY
     Route: 048
     Dates: start: 20190320

REACTIONS (1)
  - Acute generalised exanthematous pustulosis [Not Recovered/Not Resolved]

NARRATIVE: CASE EVENT DATE: 20190324
